FAERS Safety Report 12850902 (Version 2)
Quarter: 2016Q4

REPORT INFORMATION
  Report Type: Spontaneous
  Country: US (occurrence: US)
  Receive Date: 20161015
  Receipt Date: 20161130
  Transmission Date: 20170207
  Serious: No
  Sender: FDA-Public Use
  Company Number: US-ASTRAZENECA-2016SF04345

PATIENT
  Sex: Male

DRUGS (1)
  1. CRESTOR [Suspect]
     Active Substance: ROSUVASTATIN CALCIUM
     Route: 048

REACTIONS (11)
  - Myalgia [Unknown]
  - Weight decreased [Recovering/Resolving]
  - Headache [Unknown]
  - Confusional state [Unknown]
  - Decreased appetite [Unknown]
  - Blood pressure increased [Unknown]
  - Muscle disorder [Unknown]
  - Asthenia [Unknown]
  - Abdominal pain upper [Unknown]
  - Tremor [Unknown]
  - Insomnia [Recovering/Resolving]
